FAERS Safety Report 17906539 (Version 1)
Quarter: 2020Q2

REPORT INFORMATION
  Report Type: Spontaneous
  Country: US (occurrence: US)
  Receive Date: 20200616
  Receipt Date: 20200616
  Transmission Date: 20200714
  Serious: No
  Sender: FDA-Public Use
  Company Number: US-ROCHE-2534298

PATIENT
  Sex: Male

DRUGS (11)
  1. ACTEMRA [Suspect]
     Active Substance: TOCILIZUMAB
     Indication: ENDOCRINE DISORDER
     Route: 058
     Dates: start: 20171229
  2. CELECOXIB. [Concomitant]
     Active Substance: CELECOXIB
  3. FLUTICASONE. [Concomitant]
     Active Substance: FLUTICASONE
  4. AMOXICILLIN. [Concomitant]
     Active Substance: AMOXICILLIN
  5. METHOTREXATE. [Concomitant]
     Active Substance: METHOTREXATE
  6. FINASTERIDE. [Concomitant]
     Active Substance: FINASTERIDE
  7. PREDNISONE. [Concomitant]
     Active Substance: PREDNISONE
  8. TRAMADOL. [Concomitant]
     Active Substance: TRAMADOL
  9. FOLIC ACID. [Concomitant]
     Active Substance: FOLIC ACID
  10. GABAPENTIN. [Concomitant]
     Active Substance: GABAPENTIN
  11. LISINOPRIL. [Concomitant]
     Active Substance: LISINOPRIL

REACTIONS (4)
  - Off label use [Unknown]
  - Osteoarthritis [Unknown]
  - Arthralgia [Unknown]
  - Intentional product use issue [Unknown]
